FAERS Safety Report 9491619 (Version 2)
Quarter: 2013Q1

REPORT INFORMATION
  Report Type: Not Available
  Country: US (occurrence: US)
  Receive Date: 20121219
  Receipt Date: 20121219
  Transmission Date: 20140127
  Serious: Yes (Hospitalization, Other)
  Sender: FDA-Public Use
  Company Number: US-LUNDBECK-DKLU1084024

PATIENT
  Sex: Female
  Weight: 63 kg

DRUGS (3)
  1. ONFI [Suspect]
     Indication: CONVULSION
     Route: 048
     Dates: start: 20120725
  2. ONFI [Suspect]
     Route: 048
  3. ONFI [Suspect]
     Route: 048

REACTIONS (4)
  - Suicidal ideation [Recovered/Resolved]
  - Convulsion [Unknown]
  - Depression [Unknown]
  - Insomnia [Unknown]
